FAERS Safety Report 9196466 (Version 3)
Quarter: 2013Q3

REPORT INFORMATION
  Report Type: Report from Study
  Country: JP (occurrence: JP)
  Receive Date: 20130328
  Receipt Date: 20130726
  Transmission Date: 20140515
  Serious: No
  Sender: FDA-Public Use
  Company Number: JP-PFIZER INC-2013099119

PATIENT
  Age: 66 Year
  Sex: Male
  Weight: 69 kg

DRUGS (7)
  1. FOSPHENYTOIN SODIUM [Suspect]
     Indication: STATUS EPILEPTICUS
     Dosage: 22.5 MG/KG, 1X/DAY
     Route: 042
     Dates: start: 20120309, end: 20120309
  2. FOSPHENYTOIN SODIUM [Suspect]
     Dosage: 7.5 MG/KG, 1X/DAY
     Route: 042
     Dates: start: 20130310, end: 20130310
  3. UNISIA [Concomitant]
     Indication: HYPERTENSION
     Dosage: UNK
     Route: 048
  4. BISOPROLOL FUMARATE [Concomitant]
     Indication: HYPERTENSION
     Dosage: UNK
     Route: 048
  5. AMLODIPINE BESILATE [Concomitant]
     Indication: HYPERTENSION
     Dosage: UNK
     Route: 048
  6. FAMOSTAGINE [Concomitant]
     Indication: GASTRIC ULCER
     Dosage: UNK
     Route: 048
  7. ALEVIATIN [Concomitant]
     Indication: EPILEPSY
     Dosage: UNK
     Route: 048

REACTIONS (1)
  - Hepatic enzyme increased [Recovering/Resolving]
